FAERS Safety Report 9731732 (Version 1)
Quarter: 2013Q4

REPORT INFORMATION
  Report Type: Spontaneous
  Country: US (occurrence: None)
  Receive Date: 20131203
  Receipt Date: 20131203
  Transmission Date: 20140711
  Serious: Yes (Death)
  Sender: FDA-Public Use
  Company Number: US-ALKEM-000340

PATIENT
  Age: 52 Year
  Sex: Female

DRUGS (7)
  1. GABAPENTIN (GABAPENTIN) [Suspect]
     Dosage: ORAL
     Route: 048
  2. GEMFIBROZIL (GEMFIBROZIL) [Suspect]
     Dosage: ORAL
     Route: 048
  3. MORPHINE [Suspect]
     Dosage: ORAL
     Route: 048
  4. PROPRANOLOL (PROPRANOLOL) [Suspect]
     Dosage: ORAL
     Route: 048
  5. CYCLOBENZAPRINE (CYCLOBENZAPRINE) [Suspect]
     Dosage: ORAL
     Route: 048
  6. METOCLOPRAMIDE(METOCLOPRAMIDE) [Suspect]
     Dosage: ORAL
     Route: 048
  7. AMITRIPTYLIN [Suspect]
     Dosage: ORAL
     Route: 048

REACTIONS (3)
  - Cardio-respiratory arrest [None]
  - Completed suicide [None]
  - Wrong drug administered [None]
